FAERS Safety Report 24577711 (Version 1)
Quarter: 2024Q4

REPORT INFORMATION
  Report Type: Spontaneous
  Country: US (occurrence: US)
  Receive Date: 20241104
  Receipt Date: 20241104
  Transmission Date: 20250114
  Serious: Yes (Hospitalization)
  Sender: GE HEALTHCARE
  Company Number: US-GE HEALTHCARE-2024CSU012309

PATIENT
  Age: 76 Year
  Sex: Female

DRUGS (1)
  1. VIZAMYL [Suspect]
     Active Substance: FLUTEMETAMOL F-18
     Indication: Positron emission tomogram
     Dosage: 185 MBQ, TOTAL
     Route: 065
     Dates: start: 20241023, end: 20241023

REACTIONS (4)
  - Seizure [Unknown]
  - Syncope [Unknown]
  - Drooling [Unknown]
  - Liquid product physical issue [Recovered/Resolved]

NARRATIVE: CASE EVENT DATE: 20241023
